FAERS Safety Report 7204269-X (Version None)
Quarter: 2010Q4

REPORT INFORMATION
  Report Type: 
  Country: None (occurrence: None)
  Receive Date: 20101230
  Receipt Date: 20101216
  Transmission Date: 20110411
  Serious: Yes (Hospitalization, Other)
  Sender: FDA-Public Use
  Company Number: US-ROCHE-749422

PATIENT
  Sex: Female
  Weight: 70.3 kg

DRUGS (3)
  1. ACTEMRA [Suspect]
     Indication: RHEUMATOID ARTHRITIS
     Dosage: FORM: INFUSION
     Route: 042
     Dates: start: 20101007, end: 20101007
  2. ACTEMRA [Suspect]
     Route: 042
     Dates: start: 20101104, end: 20101104
  3. ACTEMRA [Suspect]
     Route: 042
     Dates: start: 20101202, end: 20101202

REACTIONS (2)
  - DEPRESSION [None]
  - MUSCLE SPASMS [None]
